FAERS Safety Report 8376236-4 (Version None)
Quarter: 2012Q2

REPORT INFORMATION
  Report Type: 
  Country: None (occurrence: None)
  Receive Date: 20120522
  Receipt Date: 20120516
  Transmission Date: 20120825
  Serious: Yes (Hospitalization, Disabling, Other)
  Sender: FDA-Public Use
  Company Number: US-TEVA-338934USA

PATIENT
  Sex: Female

DRUGS (3)
  1. METOCLOPRAMIDE [Suspect]
  2. METOCLOPRAMIDE HYDROCHLORIDE [Suspect]
  3. METOCLOPRAMIDE [Suspect]

REACTIONS (12)
  - PARKINSONISM [None]
  - EXTRAPYRAMIDAL DISORDER [None]
  - AKATHISIA [None]
  - TARDIVE DYSKINESIA [None]
  - TREMOR [None]
  - NERVOUS SYSTEM DISORDER [None]
  - RESTLESS LEGS SYNDROME [None]
  - VISUAL IMPAIRMENT [None]
  - SUICIDAL IDEATION [None]
  - DYSTONIA [None]
  - METABOLIC DISORDER [None]
  - DEPRESSION [None]
